FAERS Safety Report 12978274 (Version 1)
Quarter: 2016Q4

REPORT INFORMATION
  Report Type: Spontaneous
  Country: US (occurrence: US)
  Receive Date: 20161127
  Receipt Date: 20161127
  Transmission Date: 20170207
  Serious: Yes (Other)
  Sender: FDA-Public Use
  Company Number: None

PATIENT
  Age: 18 Year
  Sex: Male
  Weight: 108 kg

DRUGS (1)
  1. METOCLOPRAMIDE. [Suspect]
     Active Substance: METOCLOPRAMIDE
     Indication: MIGRAINE
     Dosage: ?          QUANTITY:20 TABLET(S);OTHER ROUTE:BY MOUTH AND IV?
     Dates: start: 20161113, end: 20161115

REACTIONS (2)
  - Muscle twitching [None]
  - Headache [None]

NARRATIVE: CASE EVENT DATE: 20161113
